FAERS Safety Report 15780452 (Version 1)
Quarter: 2019Q1

REPORT INFORMATION
  Report Type: Spontaneous
  Country: CN (occurrence: CN)
  Receive Date: 20190102
  Receipt Date: 20190102
  Transmission Date: 20190417
  Serious: Yes (Hospitalization, Other)
  Sender: FDA-Public Use
  Company Number: CN-ROCHE-2237250

PATIENT
  Age: 48 Year
  Sex: Male

DRUGS (11)
  1. METRONIDAZOLE. [Concomitant]
     Active Substance: METRONIDAZOLE
     Route: 065
     Dates: start: 200512
  2. CORDYCEPS [Concomitant]
     Active Substance: HERBALS
     Indication: RENAL TRANSPLANT
  3. LEVOFLOXACIN. [Concomitant]
     Active Substance: LEVOFLOXACIN
     Route: 065
     Dates: start: 200602
  4. CELLCEPT [Suspect]
     Active Substance: MYCOPHENOLATE MOFETIL\MYCOPHENOLATE MOFETIL HYDROCHLORIDE
     Indication: RENAL TRANSPLANT
     Route: 065
  5. GANCICLOVIR. [Suspect]
     Active Substance: GANCICLOVIR
     Indication: CYTOMEGALOVIRUS INFECTION
     Route: 065
     Dates: start: 200512
  6. TACROLIMUS. [Concomitant]
     Active Substance: TACROLIMUS
     Indication: RENAL TRANSPLANT
  7. PREDNISONE. [Concomitant]
     Active Substance: PREDNISONE
     Indication: RENAL TRANSPLANT
  8. CEFOTAXIME [Concomitant]
     Active Substance: CEFOTAXIME SODIUM
     Route: 065
     Dates: start: 200602
  9. LEFLUNOMIDE. [Concomitant]
     Active Substance: LEFLUNOMIDE
     Indication: RENAL TRANSPLANT
  10. GANCICLOVIR. [Suspect]
     Active Substance: GANCICLOVIR
     Route: 065
     Dates: start: 200602
  11. SULPERAZONE [Concomitant]
     Active Substance: CEFOPERAZONE SODIUM\SULBACTAM SODIUM
     Route: 065
     Dates: start: 200512

REACTIONS (11)
  - Mouth ulceration [Recovering/Resolving]
  - Genital ulceration [Recovering/Resolving]
  - Protein urine present [Unknown]
  - Unevaluable event [Unknown]
  - Blood creatinine increased [Unknown]
  - Swelling [Recovering/Resolving]
  - Pyrexia [Recovering/Resolving]
  - Cough [Unknown]
  - Chest discomfort [Unknown]
  - Lung infection [Unknown]
  - Renal impairment [Unknown]

NARRATIVE: CASE EVENT DATE: 200512
